FAERS Safety Report 8416025-5 (Version None)
Quarter: 2012Q2

REPORT INFORMATION
  Report Type: 
  Country: None (occurrence: None)
  Receive Date: 20120606
  Receipt Date: 20120601
  Transmission Date: 20120825
  Serious: Yes (Hospitalization)
  Sender: FDA-Public Use
  Company Number: PL-ROCHE-1055875

PATIENT
  Sex: Female
  Weight: 82 kg

DRUGS (8)
  1. BISOPROLOL FUMARATE [Concomitant]
     Dates: start: 20100701
  2. AMLODIPINE [Concomitant]
     Dates: start: 20050101
  3. ATORVASTATIN CALCIUM [Concomitant]
     Dates: start: 20111010
  4. OMEPRAZOLE [Concomitant]
     Dates: start: 20110411
  5. RAMIPRIL [Concomitant]
     Dates: start: 20111010
  6. TORSEMIDE [Concomitant]
     Dates: start: 20110411
  7. DICLOFENAC SODIUM [Concomitant]
     Dosage: DRUG NAME REPORTED AS: DICLOFENAC
     Dates: start: 20060101
  8. AVASTIN [Suspect]
     Indication: RENAL CELL CARCINOMA
     Route: 042
     Dates: start: 20090803, end: 20120312

REACTIONS (1)
  - PATHOLOGICAL FRACTURE [None]
